FAERS Safety Report 22532784 (Version 1)
Quarter: 2023Q2

REPORT INFORMATION
  Report Type: Spontaneous
  Country: DE (occurrence: DE)
  Receive Date: 20230607
  Receipt Date: 20230607
  Transmission Date: 20230722
  Serious: Yes (Death, Hospitalization, Other)
  Sender: FDA-Public Use
  Company Number: DE-NOVPHSZ-PHHY2019DE107659

PATIENT
  Age: 44 Year
  Sex: Female

DRUGS (7)
  1. CYCLOPHOSPHAMIDE [Suspect]
     Active Substance: CYCLOPHOSPHAMIDE
     Indication: Systemic scleroderma
     Route: 065
  2. BOSENTAN [Suspect]
     Active Substance: BOSENTAN
     Indication: Systemic scleroderma
     Route: 048
  3. SILDENAFIL [Suspect]
     Active Substance: SILDENAFIL
     Indication: Systemic scleroderma
     Route: 065
  4. CYCLOSPORINE [Suspect]
     Active Substance: CYCLOSPORINE
     Indication: Systemic scleroderma
     Route: 065
  5. OPSUMIT [Suspect]
     Active Substance: MACITENTAN
     Indication: Systemic scleroderma
     Dosage: UNK
     Route: 048
  6. ALPROSTADIL ALFADEX [Suspect]
     Active Substance: ALPROSTADIL ALFADEX
     Indication: Systemic scleroderma
     Route: 065
  7. ILOPROST TROMETHAMINE [Suspect]
     Active Substance: ILOPROST TROMETHAMINE
     Indication: Systemic scleroderma
     Route: 065

REACTIONS (14)
  - Multiple organ dysfunction syndrome [Fatal]
  - Ventricular hypokinesia [Fatal]
  - Sepsis [Unknown]
  - Right ventricular dilatation [Unknown]
  - Myocardial fibrosis [Unknown]
  - Systemic scleroderma [Unknown]
  - Cardiac dysfunction [Unknown]
  - Pneumonia [Unknown]
  - Respiratory failure [Unknown]
  - Left ventricular dysfunction [Unknown]
  - Myocarditis [Unknown]
  - Disease progression [Unknown]
  - Galectin-3 increased [Unknown]
  - Right ventricular failure [Unknown]
